FAERS Safety Report 9264180 (Version 4)
Quarter: 2013Q3

REPORT INFORMATION
  Report Type: Spontaneous
  Country: US (occurrence: US)
  Receive Date: 20130430
  Receipt Date: 20130923
  Transmission Date: 20140515
  Serious: Yes (Hospitalization)
  Sender: FDA-Public Use
  Company Number: US-PFIZER INC-2013135255

PATIENT
  Age: 66 Year
  Sex: Female
  Weight: 60.77 kg

DRUGS (15)
  1. LYRICA [Suspect]
     Indication: FIBROMYALGIA
     Dosage: 150 MG, 1X/DAY
  2. LYRICA [Suspect]
     Indication: ARTHRITIS
     Dosage: 150 MG, 1X/DAY
     Route: 048
     Dates: start: 2011
  3. LYRICA [Suspect]
     Indication: SYSTEMIC LUPUS ERYTHEMATOSUS
     Dosage: 150 MG, 2X/DAY
     Route: 048
  4. LYRICA [Suspect]
     Indication: MYALGIA
  5. DIOVAN [Concomitant]
     Indication: BLOOD PRESSURE ABNORMAL
     Dosage: UNK, 1X/DAY
  6. DIOVAN [Concomitant]
     Dosage: 80 MG, 1X/DAY
  7. LIPITOR [Concomitant]
     Indication: BLOOD CHOLESTEROL ABNORMAL
     Dosage: 40 MG, 1X/DAY
  8. SIMVASTATIN [Concomitant]
     Dosage: UNK
  9. PROZAC [Concomitant]
     Dosage: UNK
  10. BONIVA [Concomitant]
     Dosage: UNK
  11. AMBIEN CR [Concomitant]
     Dosage: UNK
  12. REQUIP [Concomitant]
     Dosage: UNK
  13. IMITREX [Concomitant]
     Dosage: UNK
  14. TRAZODONE [Concomitant]
     Dosage: UNK
  15. LORCET PLUS [Concomitant]
     Dosage: UNK

REACTIONS (4)
  - Off label use [Unknown]
  - Cerebrovascular accident [Unknown]
  - Cerebrovascular accident [Recovering/Resolving]
  - Memory impairment [Unknown]
